FAERS Safety Report 9652526 (Version 2)
Quarter: 2013Q4

REPORT INFORMATION
  Report Type: Report from Study
  Country: US (occurrence: US)
  Receive Date: 20131029
  Receipt Date: 20131108
  Transmission Date: 20140711
  Serious: Yes (Death, Hospitalization, Other)
  Sender: FDA-Public Use
  Company Number: US-ACTELION-A-US2013-90223

PATIENT
  Age: 63 Year
  Sex: Female

DRUGS (2)
  1. VELETRI [Suspect]
     Indication: PULMONARY ARTERIAL HYPERTENSION
     Dosage: 16 NG/KG, PER MIN
     Route: 042
     Dates: start: 20130404
  2. SILDENAFIL [Concomitant]

REACTIONS (4)
  - Sudden cardiac death [Fatal]
  - Cardiac tamponade [Unknown]
  - Dyspnoea [Unknown]
  - Asthenia [Unknown]
